FAERS Safety Report 6575947-0 (Version None)
Quarter: 2010Q1

REPORT INFORMATION
  Report Type: 
  Country: None (occurrence: None)
  Receive Date: 20100209
  Receipt Date: 20100127
  Transmission Date: 20100710
  Serious: Yes (Hospitalization)
  Sender: FDA-Public Use
  Company Number: US-ELI_LILLY_AND_COMPANY-US201002001106

PATIENT
  Sex: Female

DRUGS (10)
  1. EVISTA [Suspect]
     Indication: OSTEOPOROSIS
     Dosage: 60 MG, DAILY (1/D)
     Dates: start: 20080101, end: 20100124
  2. FORTEO [Suspect]
     Dosage: 20 UG, DAILY (1/D)
     Dates: start: 20090801, end: 20091012
  3. VITAMIN B3 [Concomitant]
  4. PREVACID [Concomitant]
  5. PREMARIN [Concomitant]
  6. VAGIFEM [Concomitant]
  7. ESTRACE [Concomitant]
  8. BIOTIN [Concomitant]
  9. VITAMIN D3 [Concomitant]
  10. CITRACAL [Concomitant]

REACTIONS (8)
  - BONE DENSITY DECREASED [None]
  - BONE DISORDER [None]
  - DELAYED RECOVERY FROM ANAESTHESIA [None]
  - FALL [None]
  - MUSCULOSKELETAL PAIN [None]
  - PROCEDURAL PAIN [None]
  - ROTATOR CUFF SYNDROME [None]
  - VITAMIN D DECREASED [None]
